FAERS Safety Report 8711336 (Version 2)
Quarter: 2013Q1

REPORT INFORMATION
  Report Type: Report from Study
  Country: JP (occurrence: JP)
  Receive Date: 20120807
  Receipt Date: 20130311
  Transmission Date: 20140127
  Serious: Yes (Hospitalization, Other)
  Sender: FDA-Public Use
  Company Number: JP-009507513-2012SP021503

PATIENT
  Age: 54 Year
  Sex: Female
  Weight: 50 kg

DRUGS (24)
  1. PEGINTERFERON ALFA-2B [Suspect]
     Indication: HEPATITIS C
     Dosage: 1.5 MICROGRAM PER KILOGRAM, QW
     Route: 058
     Dates: start: 20120110, end: 20120227
  2. PEGINTERFERON ALFA-2B [Suspect]
     Dosage: 50 MICROGRAM PER KILOGRAM, QW
     Route: 058
     Dates: start: 20120312, end: 20120326
  3. PEGINTERFERON ALFA-2B [Suspect]
     Dosage: 80 MICROGRAM PER KILOGRAM, QW
     Route: 058
     Dates: start: 20120402
  4. REBETOL [Suspect]
     Indication: CHRONIC HEPATITIS C
     Dosage: 600 MG, QD
     Route: 048
     Dates: start: 20120110, end: 20120226
  5. REBETOL [Suspect]
     Dosage: 200 MG, QD
     Route: 048
     Dates: start: 20120227, end: 20120302
  6. REBETOL [Suspect]
     Dosage: 600 MG, QD
     Route: 048
     Dates: start: 20120402, end: 20120513
  7. REBETOL [Suspect]
     Dosage: 400 MG, ONCE
     Route: 048
     Dates: start: 20120514, end: 20120625
  8. TELAVIC [Suspect]
     Indication: CHRONIC HEPATITIS C
     Dosage: 2250 MG DAILY
     Route: 048
     Dates: start: 20120110, end: 20120304
  9. TELAVIC [Suspect]
     Dosage: 1500 MG DAILY
     Route: 048
     Dates: start: 20120305, end: 20120401
  10. LENDORMIN [Concomitant]
     Indication: PROPHYLAXIS
     Dosage: 0.25 MG/DAY, UPDATE (31MAY2012): DURATION
     Route: 048
     Dates: start: 20120111, end: 20120116
  11. LOXONIN [Concomitant]
     Indication: PROPHYLAXIS
     Dosage: FORMULATION: POR, TOTAL DAILY DOSE: 60 MG, CUMULATIVE DOSE: 180 MG, UPDATE (31MAY2012): DURATION
     Route: 048
     Dates: start: 20120111, end: 20120116
  12. PARIET [Concomitant]
     Indication: PROPHYLAXIS
     Dosage: FORMULATION: POR, TOTAL DALY DOSE: 10 MG, UPDATE (31MAY2012): DURATION
     Route: 048
     Dates: start: 20120119, end: 20120205
  13. XYZAL [Concomitant]
     Indication: PRODUCT USED FOR UNKNOWN INDICATION
     Dosage: 10 MG, QD
     Route: 065
     Dates: start: 20120227
  14. HIRUDOID [Concomitant]
     Indication: DRUG ERUPTION
     Dosage: HIRUDOID SOFT OINTMENT 0.3%
     Route: 065
     Dates: start: 20120113
  15. MYSER (CYCLOSERINE) [Concomitant]
     Indication: DRUG ERUPTION
     Dosage: MYSER OINTMENT 0.05%
     Route: 065
     Dates: start: 20120113
  16. LOCOID [Concomitant]
     Indication: RASH
     Dosage: UPDATE (31MAY2012): LOCOID OINTMENT 0.1 PERCENT AND STOP DATE
     Route: 065
     Dates: start: 20120124, end: 20120220
  17. LENDORMIN [Concomitant]
     Indication: INSOMNIA
     Dosage: 0.25 MG, QD
     Route: 048
     Dates: start: 20120227
  18. PETROLATUM [Concomitant]
     Indication: PRODUCT USED FOR UNKNOWN INDICATION
     Dosage: TO PROVIDE MOISTURE
     Route: 065
     Dates: start: 20120316
  19. ELECTROLYTES (UNSPECIFIED) (+) SODIUM LACTATE [Concomitant]
     Indication: PRODUCT USED FOR UNKNOWN INDICATION
     Dosage: UPDATE (31MAY2012):STOP DATE
     Route: 041
     Dates: start: 20120116, end: 20120120
  20. [THERAPY UNSPECIFIED] [Concomitant]
     Indication: PROPHYLAXIS
     Dosage: 150 MG, ONCE
     Route: 048
     Dates: start: 20120111, end: 20120212
  21. [THERAPY UNSPECIFIED] [Concomitant]
     Route: 048
     Dates: start: 20120227, end: 20120611
  22. LENDORMIN D [Concomitant]
     Indication: PROPHYLAXIS
     Dosage: AS NEEDED 0.25MG/DAY.
     Route: 048
     Dates: start: 20120111, end: 20120116
  23. [THERAPY UNSPECIFIED] [Concomitant]
     Indication: PROPHYLAXIS
     Route: 048
     Dates: start: 20120111, end: 20120212
  24. [THERAPY UNSPECIFIED] [Concomitant]
     Route: 048
     Dates: end: 20120611

REACTIONS (4)
  - Depressive symptom [Recovering/Resolving]
  - Renal impairment [Recovered/Resolved]
  - Anaemia [Not Recovered/Not Resolved]
  - Haemoglobin decreased [Recovered/Resolved]
